FAERS Safety Report 7213897-7 (Version None)
Quarter: 2011Q1

REPORT INFORMATION
  Report Type: 
  Country: None (occurrence: None)
  Receive Date: 20110106
  Receipt Date: 20101229
  Transmission Date: 20110831
  Serious: Yes (Other)
  Sender: FDA-Public Use
  Company Number: US-ABBOTT-11P-163-0694564-00

PATIENT
  Age: 43 Year
  Sex: Female

DRUGS (3)
  1. ASPIRIN [Concomitant]
     Indication: CEREBROVASCULAR ACCIDENT
  2. HUMIRA [Suspect]
     Indication: RHEUMATOID ARTHRITIS
     Dates: start: 20101001
  3. ALPRAZOLAM [Concomitant]
     Indication: ANXIETY

REACTIONS (6)
  - TRANSIENT ISCHAEMIC ATTACK [None]
  - PYREXIA [None]
  - GASTROINTESTINAL DISORDER [None]
  - FEELING ABNORMAL [None]
  - CHILLS [None]
  - HYPERHIDROSIS [None]
